FAERS Safety Report 8587243-0 (Version None)
Quarter: 2012Q3

REPORT INFORMATION
  Report Type: 
  Country: None (occurrence: None)
  Receive Date: 20120810
  Receipt Date: 20110826
  Transmission Date: 20120928
  Serious: No
  Sender: FDA-Public Use
  Company Number: US-ASTRAZENECA-2011SE51558

PATIENT
  Sex: Female

DRUGS (3)
  1. TAMOXIFEN CITRATE [Suspect]
  2. ARIMIDEX [Suspect]
     Route: 048
  3. AROMASIN [Suspect]

REACTIONS (1)
  - ADVERSE DRUG REACTION [None]
